FAERS Safety Report 8012695-4 (Version None)
Quarter: 2011Q4

REPORT INFORMATION
  Report Type: 
  Country: None (occurrence: None)
  Receive Date: 20111229
  Receipt Date: 20110929
  Transmission Date: 20120403
  Serious: No
  Sender: FDA-Public Use
  Company Number: US-MYLANLABS-2011S1019190

PATIENT
  Age: 27 Year
  Sex: Female

DRUGS (11)
  1. ZYRTEC [Concomitant]
  2. VENLAFAXINE HCL [Suspect]
     Indication: BIPOLAR DISORDER
     Route: 048
  3. VALIUM [Concomitant]
  4. NIACIN [Concomitant]
  5. VITAMIN D [Concomitant]
  6. VENLAFAXINE HCL [Suspect]
     Indication: BIPOLAR I DISORDER
     Route: 048
  7. MONONESSA [Concomitant]
  8. VENLAFAXINE HCL [Suspect]
     Indication: POST-TRAUMATIC STRESS DISORDER
     Route: 048
  9. AMBIEN [Concomitant]
  10. VITAMIN B-12 [Concomitant]
  11. SYNTHROID [Concomitant]

REACTIONS (1)
  - DRUG SCREEN FALSE POSITIVE [None]
